FAERS Safety Report 24969872 (Version 1)
Quarter: 2025Q1

REPORT INFORMATION
  Report Type: Report from Study
  Country: US (occurrence: US)
  Receive Date: 20250214
  Receipt Date: 20250214
  Transmission Date: 20250408
  Serious: Yes (Other)
  Sender: ACADIA PHARMACEUTICALS
  Company Number: US-ACADIA PHARMACEUTICALS INC.-ACA-2025-PIM-001504

PATIENT
  Sex: Male

DRUGS (1)
  1. NUPLAZID [Suspect]
     Active Substance: PIMAVANSERIN TARTRATE
     Indication: Parkinson^s disease
     Dosage: 34 MILLIGRAM, QD
     Route: 048
     Dates: start: 202412

REACTIONS (13)
  - Pneumonia [Unknown]
  - Unresponsive to stimuli [Unknown]
  - Hallucination, visual [Unknown]
  - Insomnia [Unknown]
  - Sleep disorder [Unknown]
  - Speech disorder [Unknown]
  - Condition aggravated [Unknown]
  - Cough [Not Recovered/Not Resolved]
  - Emotional distress [Unknown]
  - Salivary hypersecretion [Unknown]
  - Agitation [Not Recovered/Not Resolved]
  - Confusional state [Unknown]
  - Constipation [Unknown]
